FAERS Safety Report 8579926-3 (Version None)
Quarter: 2012Q3

REPORT INFORMATION
  Report Type: 
  Country: None (occurrence: None)
  Receive Date: 20120808
  Receipt Date: 20120730
  Transmission Date: 20120928
  Serious: Yes (Death, Life-Threatening)
  Sender: FDA-Public Use
  Company Number: JP-CELGENEUS-087-CCAZA-11072849

PATIENT
  Sex: Male
  Weight: 66 kg

DRUGS (5)
  1. METHYLPREDNISOLONE ACETATE [Concomitant]
     Indication: STEROID THERAPY
     Route: 065
     Dates: start: 20110701
  2. NEUTROGIN [Concomitant]
     Route: 065
     Dates: start: 20110701, end: 20110713
  3. VIDAZA [Suspect]
     Dosage: 75 MILLIGRAM/SQ. METER
     Route: 058
     Dates: start: 20110613, end: 20110615
  4. RECOMODULIN [Concomitant]
     Route: 065
     Dates: start: 20110701, end: 20110711
  5. VIDAZA [Suspect]
     Dosage: 75 MILLIGRAM/SQ. METER
     Route: 058
     Dates: start: 20110607, end: 20110610

REACTIONS (2)
  - DISSEMINATED INTRAVASCULAR COAGULATION [None]
  - PNEUMONIA [None]
